FAERS Safety Report 5856870-3 (Version None)
Quarter: 2008Q3

REPORT INFORMATION
  Report Type: 
  Country: None (occurrence: None)
  Receive Date: 20080825
  Receipt Date: 20080818
  Transmission Date: 20090109
  Serious: Yes (Other)
  Sender: FDA-Public Use
  Company Number: US-PFIZER INC-2008068975

PATIENT
  Sex: Female
  Weight: 90.909 kg

DRUGS (16)
  1. LIPITOR [Suspect]
     Indication: MYOCARDIAL INFARCTION
     Route: 048
  2. QUININE [Concomitant]
  3. LEVOXYL [Concomitant]
  4. METOPROLOL TARTRATE [Concomitant]
  5. LUMIGAN [Concomitant]
  6. OPHTHALMOLOGICALS [Concomitant]
  7. MICARDIS [Concomitant]
  8. EVISTA [Concomitant]
  9. PRILOSEC [Concomitant]
  10. ACETYLSALICYLIC ACID SRT [Concomitant]
  11. WARFARIN SODIUM [Concomitant]
  12. VITAMIN TAB [Concomitant]
  13. MINERALS NOS [Concomitant]
  14. GLUCOSAMINE W/CHONDROITIN SULFATES [Concomitant]
  15. HYDROCHLOROTHIAZIDE [Concomitant]
  16. WARFARIN SODIUM [Concomitant]

REACTIONS (5)
  - BODY HEIGHT DECREASED [None]
  - MUSCLE DISORDER [None]
  - MYALGIA [None]
  - OSTEOPENIA [None]
  - OSTEOPOROSIS [None]
